FAERS Safety Report 8707457 (Version 2)
Quarter: 2013Q4

REPORT INFORMATION
  Report Type: Spontaneous
  Country: US (occurrence: US)
  Receive Date: 20120804
  Receipt Date: 20131106
  Transmission Date: 20140711
  Serious: Yes (Hospitalization)
  Sender: FDA-Public Use
  Company Number: US-009507513-1207USA011432

PATIENT
  Age: 64 Year
  Sex: Male

DRUGS (2)
  1. VICTRELIS [Suspect]
     Dosage: 200 MG, UNK
     Route: 048
  2. RIBAVIRIN (WARRICK) [Suspect]
     Dosage: 600 MG, BID
     Route: 048

REACTIONS (2)
  - Syncope [Unknown]
  - Anaemia [Unknown]
